FAERS Safety Report 4549432-1 (Version None)
Quarter: 2005Q1

REPORT INFORMATION
  Report Type: 
  Country: None (occurrence: None)
  Receive Date: 20050106
  Receipt Date: 20041221
  Transmission Date: 20050727
  Serious: Yes (Life-Threatening, Hospitalization, Disabling)
  Sender: FDA-Public Use
  Company Number: JP_041205342

PATIENT
  Age: 71 Year
  Sex: Male
  Weight: 47 kg

DRUGS (3)
  1. VANCOMYCIN [Suspect]
     Indication: STAPHYLOCOCCAL INFECTION
     Dosage: 1000 M/1 DAY
     Dates: start: 20040422, end: 20040422
  2. GENERAL ANESTHESIA [Concomitant]
  3. MODACIN (CEFTAZIDIME) [Concomitant]

REACTIONS (9)
  - ANAPHYLACTIC SHOCK [None]
  - ARTERIOSCLEROSIS [None]
  - CARDIAC ARREST [None]
  - CONDITION AGGRAVATED [None]
  - CORONARY ARTERY STENOSIS [None]
  - DEHYDRATION [None]
  - MYDRIASIS [None]
  - NERVOUS SYSTEM DISORDER [None]
  - VENTRICULAR FIBRILLATION [None]
